FAERS Safety Report 5580634-1 (Version None)
Quarter: 2007Q4

REPORT INFORMATION
  Report Type: 
  Country: None (occurrence: None)
  Receive Date: 20071130
  Receipt Date: 20070709
  Transmission Date: 20080405
  Serious: No
  Sender: FDA-Public Use
  Company Number: US200707002485

PATIENT
  Age: 51 Year
  Sex: Female
  Weight: 81.6 kg

DRUGS (11)
  1. BYETTA [Suspect]
     Indication: TYPE 2 DIABETES MELLITUS
     Dosage: 5 UG, 2/D, 10 UG, 2/D, SUBCUTANEOUS
     Route: 058
     Dates: start: 20070201, end: 20070201
  2. BYETTA [Suspect]
     Indication: TYPE 2 DIABETES MELLITUS
     Dosage: 5 UG, 2/D, 10 UG, 2/D, SUBCUTANEOUS
     Route: 058
     Dates: start: 20070201
  3. METFORMIN HCL [Concomitant]
  4. LANTUS [Concomitant]
  5. ACTOS [Concomitant]
  6. LASIX [Concomitant]
  7. TOPROL-XL [Concomitant]
  8. DIOVAN (HYDROCHLOROTHIAZIDE, VALSARTAN) [Concomitant]
  9. CLONIDINE [Concomitant]
  10. NIFEDIPINE [Concomitant]
  11. ZOCOR [Concomitant]

REACTIONS (2)
  - OEDEMA PERIPHERAL [None]
  - WEIGHT DECREASED [None]
